FAERS Safety Report 6306135-0 (Version None)
Quarter: 2009Q3

REPORT INFORMATION
  Report Type: 
  Country: None (occurrence: None)
  Receive Date: 20090810
  Receipt Date: 20090810
  Transmission Date: 20100115
  Serious: Yes (Life-Threatening)
  Sender: FDA-Public Use
  Company Number: None

PATIENT
  Age: 48 Year
  Sex: Female
  Weight: 58.9676 kg

DRUGS (1)
  1. PROAIR HFA [Suspect]
     Indication: ASTHMA
     Dosage: ONE PUFF EVERY 4 TO 6 HOURS PO, AS NEEDED
     Route: 048
     Dates: start: 20090701, end: 20090807

REACTIONS (1)
  - DRUG EFFECT DECREASED [None]
